FAERS Safety Report 9382959 (Version 1)
Quarter: 2013Q3

REPORT INFORMATION
  Report Type: Report from Study
  Country: BE (occurrence: BE)
  Receive Date: 20130703
  Receipt Date: 20130703
  Transmission Date: 20140515
  Serious: Yes (Other)
  Sender: FDA-Public Use
  Company Number: BE-ABBOTT-13P-013-1114454-00

PATIENT
  Sex: Female

DRUGS (5)
  1. HUMIRA [Suspect]
     Indication: ANKYLOSING SPONDYLITIS
     Dates: start: 20110816, end: 20121101
  2. HUMIRA [Suspect]
  3. MOBIC [Concomitant]
     Indication: ARTHRITIS
  4. PERDOLAN [Concomitant]
     Indication: ARTHRITIS
  5. VIMOVO [Concomitant]
     Indication: ARTHRITIS

REACTIONS (2)
  - Ectopic pregnancy [Unknown]
  - Inflammation [Unknown]
